FAERS Safety Report 7008090-7 (Version None)
Quarter: 2010Q3

REPORT INFORMATION
  Report Type: 
  Country: None (occurrence: None)
  Receive Date: 20100920
  Receipt Date: 20100908
  Transmission Date: 20110219
  Serious: Yes (Hospitalization)
  Sender: FDA-Public Use
  Company Number: CAP10000364

PATIENT
  Age: 57 Year
  Sex: Female

DRUGS (1)
  1. MACROBID [Suspect]
     Dosage: 100 MG TWICE DAILY, ORAL
     Route: 048
     Dates: start: 20100601, end: 20100601

REACTIONS (1)
  - HEPATIC FAILURE [None]
